FAERS Safety Report 21246955 (Version 1)
Quarter: 2022Q3

REPORT INFORMATION
  Report Type: Spontaneous
  Country: JP (occurrence: JP)
  Receive Date: 20220824
  Receipt Date: 20220824
  Transmission Date: 20221026
  Serious: Yes (Other)
  Sender: FDA-Public Use
  Company Number: JP-SUN PHARMACEUTICAL INDUSTRIES LTD-2022R1-352036

PATIENT
  Age: 64 Year
  Sex: Female
  Weight: 46 kg

DRUGS (1)
  1. DOXORUBICIN [Suspect]
     Active Substance: DOXORUBICIN
     Indication: Non-Hodgkin^s lymphoma
     Dosage: 420 MILLIGRAM/SQ. METER
     Route: 065

REACTIONS (2)
  - Cardiomyopathy [Unknown]
  - Cardiac failure chronic [Unknown]
